FAERS Safety Report 15620275 (Version 1)
Quarter: 2018Q4

REPORT INFORMATION
  Report Type: Report from Study
  Country: IT (occurrence: IT)
  Receive Date: 20181115
  Receipt Date: 20181115
  Transmission Date: 20190205
  Serious: Yes (Other)
  Sender: FDA-Public Use
  Company Number: IT-TEVA-2018-IT-976130

PATIENT
  Age: 23 Year
  Sex: Male

DRUGS (1)
  1. AMOXICILLINA/ACIDO CLAVULANICO TEVA 1,2 G POLVERE PER SOLUZIONE INIETT [Suspect]
     Active Substance: AMOXICILLIN\CLAVULANIC ACID
     Indication: OROPHARYNGEAL PAIN
     Route: 048
     Dates: start: 20180808, end: 20180809

REACTIONS (7)
  - Pruritus [Recovering/Resolving]
  - Flushing [Recovering/Resolving]
  - Urticaria [Recovering/Resolving]
  - Mandibular mass [Recovering/Resolving]
  - Abdominal pain upper [Recovering/Resolving]
  - Lip oedema [Recovering/Resolving]
  - Throat tightness [Recovering/Resolving]

NARRATIVE: CASE EVENT DATE: 20180809
